FAERS Safety Report 9257923 (Version 3)
Quarter: 2013Q2

REPORT INFORMATION
  Report Type: Report from Study
  Country: PL (occurrence: PL)
  Receive Date: 20130426
  Receipt Date: 20130627
  Transmission Date: 20140414
  Serious: Yes (Life-Threatening)
  Sender: FDA-Public Use
  Company Number: PL-UCBSA-084001

PATIENT
  Age: 49 Year
  Sex: Female
  Weight: 69.4 kg

DRUGS (3)
  1. CERTOLIZUMAB PEGOL [Suspect]
     Indication: PSORIATIC ARTHROPATHY
     Dosage: NO. OF DOSES RECEIVED: IN OPEN LABEL-14 ;AND 35 FROM THE STUDY BEGINNING TILL WITHDRAWAL
     Route: 058
     Dates: start: 20110221, end: 20130423
  2. MIANSERIN [Concomitant]
     Indication: INSOMNIA
     Dates: start: 20121227
  3. PATENTEX OVAL [Concomitant]
     Indication: CONTRACEPTION
     Dates: start: 20110215

REACTIONS (1)
  - Breast cancer [Unknown]
